FAERS Safety Report 15489366 (Version 2)
Quarter: 2018Q4

REPORT INFORMATION
  Report Type: Spontaneous
  Country: JP (occurrence: JP)
  Receive Date: 20181011
  Receipt Date: 20181031
  Transmission Date: 20190205
  Serious: Yes (Life-Threatening, Hospitalization)
  Sender: FDA-Public Use
  Company Number: JP-ARBOR PHARMACEUTICALS, LLC-JP-2018ARB001014

PATIENT

DRUGS (26)
  1. FOSTOIN [Concomitant]
     Active Substance: FOSPHENYTOIN SODIUM
     Indication: SEIZURE
     Dosage: 1500 MG, QD
     Dates: start: 20180920, end: 20180921
  2. GLYCEREB [Concomitant]
     Active Substance: FRUCTOSE\GLYCERIN
     Indication: PRODUCT USED FOR UNKNOWN INDICATION
     Dosage: 200 ML, BID
     Dates: start: 20180922, end: 20180923
  3. MEROPENEM. [Concomitant]
     Active Substance: MEROPENEM
     Indication: PRODUCT USED FOR UNKNOWN INDICATION
     Dosage: 1 G, TID
     Dates: start: 20180922, end: 20181001
  4. HUMULIN R [Concomitant]
     Active Substance: INSULIN HUMAN
     Indication: PRODUCT USED FOR UNKNOWN INDICATION
     Dosage: 50 IU, QD
     Dates: start: 20180924, end: 20181004
  5. NICARDIPINE HYDROCHLORIDE. [Concomitant]
     Active Substance: NICARDIPINE HYDROCHLORIDE
     Indication: PRODUCT USED FOR UNKNOWN INDICATION
     Dosage: UNK
     Dates: start: 20180920, end: 20180923
  6. SOSEGON                            /00052101/ [Concomitant]
     Active Substance: PENTAZOCINE
     Indication: PRODUCT USED FOR UNKNOWN INDICATION
     Dosage: 15 MG, QD
     Dates: start: 20180922
  7. SEVOFLURANE. [Concomitant]
     Active Substance: SEVOFLURANE
     Indication: ANAESTHESIA PROCEDURE
     Dosage: UNK
     Dates: start: 20180920, end: 20180920
  8. DIPRIVAN [Concomitant]
     Active Substance: PROPOFOL
     Dosage: UNK
     Dates: start: 20180923, end: 20180925
  9. LANTUS [Concomitant]
     Active Substance: INSULIN GLARGINE
     Indication: PRODUCT USED FOR UNKNOWN INDICATION
     Dosage: 6 IU, QD
     Dates: start: 20180923
  10. CARBAZOCHROME SULFONATE NA [Concomitant]
     Indication: HAEMOSTASIS
     Dosage: 150 MG, QD
     Dates: start: 20180920, end: 20180923
  11. ROCURONIUM BROMIDE. [Concomitant]
     Active Substance: ROCURONIUM BROMIDE
     Dosage: 50 MG, QD
     Dates: start: 20180928
  12. ALABEL [Concomitant]
     Active Substance: AMINOLEVULINIC ACID HYDROCHLORIDE
     Indication: PRODUCT USED FOR UNKNOWN INDICATION
     Dosage: 0.8 G, QD
     Dates: start: 20180920
  13. CERCINE [Concomitant]
     Active Substance: DIAZEPAM
     Indication: PRODUCT USED FOR UNKNOWN INDICATION
     Dosage: 10 MG, QD
     Dates: start: 20180920
  14. ULTIVA [Concomitant]
     Active Substance: REMIFENTANIL HYDROCHLORIDE
     Indication: ANAESTHESIA PROCEDURE
     Dosage: UNK
     Dates: start: 20180920, end: 20180920
  15. ADRENALINE                         /00003901/ [Concomitant]
     Active Substance: EPINEPHRINE
     Indication: PRODUCT USED FOR UNKNOWN INDICATION
     Dosage: 2 DF, QD
     Dates: start: 20180923
  16. CEFAZOLIN SODIUM. [Concomitant]
     Active Substance: CEFAZOLIN SODIUM
     Indication: INFECTION PROPHYLAXIS
     Dosage: UNK
  17. DIPRIVAN [Concomitant]
     Active Substance: PROPOFOL
     Indication: ANAESTHESIA PROCEDURE
     Dosage: UNK
     Dates: start: 20180920, end: 20180920
  18. TENELIA [Concomitant]
     Active Substance: TENELIGLIPTIN
     Indication: PRODUCT USED FOR UNKNOWN INDICATION
     Dosage: UNK
  19. E KEPPRA [Concomitant]
     Active Substance: LEVETIRACETAM
     Indication: SEIZURE
     Dosage: 2000 MG, QD
     Dates: start: 20180921, end: 20181011
  20. GLIADEL [Suspect]
     Active Substance: CARMUSTINE
     Indication: MALIGNANT GLIOMA
     Dosage: 7.7 MG, 8 TOTAL
     Dates: start: 20180920
  21. FENTANYL. [Concomitant]
     Active Substance: FENTANYL
     Indication: ANAESTHESIA PROCEDURE
     Dosage: UNK
     Dates: start: 20180920, end: 20180920
  22. DEXART [Concomitant]
     Active Substance: DEXAMETHASONE SODIUM PHOSPHATE
     Indication: PRODUCT USED FOR UNKNOWN INDICATION
     Dosage: 6.6 MG, QD
     Dates: start: 20180922
  23. SULBACILLIN [Concomitant]
     Active Substance: AMPICILLIN SODIUM\SULBACTAM SODIUM
     Indication: PRODUCT USED FOR UNKNOWN INDICATION
     Dosage: 3 G, QD
     Dates: start: 20180922
  24. TRANEXAMIC ACID. [Concomitant]
     Active Substance: TRANEXAMIC ACID
     Indication: HAEMOSTASIS
     Dosage: 1 G, QD
     Dates: start: 20180920, end: 20180923
  25. OMEPRAZOLE. [Concomitant]
     Active Substance: OMEPRAZOLE
     Indication: PRODUCT USED FOR UNKNOWN INDICATION
     Dosage: 20 MG, BID
     Dates: start: 20180922, end: 20181001
  26. ROCURONIUM BROMIDE. [Concomitant]
     Active Substance: ROCURONIUM BROMIDE
     Indication: ANAESTHESIA PROCEDURE
     Dosage: UNK
     Dates: start: 20180920, end: 20180920

REACTIONS (3)
  - Seizure [Recovering/Resolving]
  - Cardio-respiratory arrest [Recovering/Resolving]
  - Cholecystitis [Not Recovered/Not Resolved]

NARRATIVE: CASE EVENT DATE: 20180922
